FAERS Safety Report 7672531 (Version 5)
Quarter: 2014Q1

REPORT INFORMATION
  Report Type: Report from Study
  Country: JP (occurrence: JP)
  Receive Date: 20101117
  Receipt Date: 20140310
  Transmission Date: 20141002
  Serious: Yes (Hospitalization, Other)
  Sender: FDA-Public Use
  Company Number: PHHY2010JP75145

PATIENT
  Age: 66 Year
  Sex: Male

DRUGS (20)
  1. AMN107 [Suspect]
     Indication: CHRONIC MYELOID LEUKAEMIA
     Dosage: 800 MG, DAILY
     Route: 048
     Dates: start: 20100511, end: 20100607
  2. AMN107 [Suspect]
     Dosage: 400 MG, DAILY
     Route: 048
     Dates: start: 20100726
  3. AMN107 [Suspect]
     Dosage: 800 MG/DAY
     Route: 048
     Dates: start: 20100809, end: 20100903
  4. AMN107 [Suspect]
     Dosage: 200 MG/DAY
     Dates: start: 20101015, end: 20101103
  5. AMN107 [Suspect]
     Dosage: 200 MG/DAY
     Route: 048
     Dates: start: 20101216, end: 20110120
  6. AMN107 [Suspect]
     Dosage: 200 MG/DAY
     Route: 048
     Dates: start: 20110224, end: 20110324
  7. AMN107 [Suspect]
     Dosage: 150 MG/DAY
     Route: 048
     Dates: start: 20110525, end: 20110623
  8. AMN107 [Suspect]
     Dosage: 150 MG, FOUR TIMES IN SEVEN DAYS
     Route: 048
     Dates: start: 20110811, end: 20110916
  9. AMN107 [Suspect]
     Dosage: 150 MG, TWICE IN 7 DAYS
     Route: 048
     Dates: start: 20121102, end: 20121110
  10. AMN107 [Suspect]
     Dosage: 150 MG, ONCE IN SEVEN DAYS
     Route: 048
     Dates: start: 20120113, end: 20120308
  11. AMN107 [Suspect]
     Dosage: 150 MG, ONCE IN 14 DAYS
     Route: 048
     Dates: start: 20120323, end: 20120419
  12. AMN107 [Suspect]
     Dosage: 150 MG, ONCE IN 10 DAYS
     Route: 048
     Dates: start: 20120420, end: 20120711
  13. AMN107 [Suspect]
     Dosage: 150 MG, ONCE IN 7 DAYS
     Route: 048
     Dates: start: 20120712, end: 20120926
  14. AMN107 [Suspect]
     Dosage: 150 MG, ONCE IN 5 DAYS
     Route: 048
     Dates: start: 20120927, end: 20130113
  15. NU-LOTAN [Concomitant]
     Indication: HYPERTENSION
     Dosage: 25 MG
     Route: 048
     Dates: start: 20100511
  16. NU-LOTAN [Concomitant]
     Dosage: 25 MG
     Route: 048
     Dates: end: 20101103
  17. BEPRICOR [Concomitant]
     Indication: ARRHYTHMIA
     Dosage: 100 MG
     Route: 048
     Dates: start: 20100511
  18. BEPRICOR [Concomitant]
     Dosage: 100 MG
     Route: 048
  19. BEPRICOR [Concomitant]
     Dosage: 100 MG
     Route: 048
  20. BEPRICOR [Concomitant]
     Dosage: 100 MG
     Route: 048

REACTIONS (6)
  - Lacunar infarction [Recovered/Resolved]
  - Cerebral infarction [Recovered/Resolved with Sequelae]
  - Platelet count decreased [Recovering/Resolving]
  - Neutrophil count decreased [Recovered/Resolved]
  - Electrocardiogram QT prolonged [Not Recovered/Not Resolved]
  - Dyslalia [Unknown]
